FAERS Safety Report 15151356 (Version 1)
Quarter: 2018Q3

REPORT INFORMATION
  Report Type: Report from Study
  Country: US (occurrence: US)
  Receive Date: 20180716
  Receipt Date: 20180716
  Transmission Date: 20181010
  Serious: Yes (Hospitalization)
  Sender: FDA-Public Use
  Company Number: US-ACTELION-A-NJ2018-173360

PATIENT
  Age: 87 Year
  Sex: Female

DRUGS (3)
  1. METOPROLOL. [Interacting]
     Active Substance: METOPROLOL
     Indication: BLOOD PRESSURE MEASUREMENT
     Dosage: UNK, BID
     Route: 065
  2. OPSUMIT [Suspect]
     Active Substance: MACITENTAN
     Indication: PULMONARY ARTERIAL HYPERTENSION
     Dosage: 10 MG, QD
     Route: 048
     Dates: start: 20180509
  3. METOPROLOL. [Interacting]
     Active Substance: METOPROLOL
     Dosage: UNK
     Route: 065

REACTIONS (5)
  - Hospitalisation [Unknown]
  - Blood pressure abnormal [Unknown]
  - Drug interaction [Unknown]
  - Fluid retention [Unknown]
  - Anaemia [Unknown]

NARRATIVE: CASE EVENT DATE: 20180525
